FAERS Safety Report 24605196 (Version 3)
Quarter: 2024Q4

REPORT INFORMATION
  Report Type: Report from Study
  Country: JP (occurrence: JP)
  Receive Date: 20241111
  Receipt Date: 20241220
  Transmission Date: 20250115
  Serious: Yes (Death)
  Sender: SHIONOGI
  Company Number: JP-shionogi-202400002126

PATIENT
  Age: 52 Year
  Sex: Female
  Weight: 36 kg

DRUGS (15)
  1. CEFIDEROCOL [Suspect]
     Active Substance: CEFIDEROCOL
     Indication: Lung abscess
     Route: 041
     Dates: start: 20240621, end: 20240702
  2. CEFIDEROCOL [Suspect]
     Active Substance: CEFIDEROCOL
     Dosage: 1.5 G X TWICE?1 G X ONCE
     Route: 041
     Dates: start: 20240703, end: 20240703
  3. CEFIDEROCOL [Suspect]
     Active Substance: CEFIDEROCOL
     Route: 041
     Dates: start: 20240704, end: 20240924
  4. VANCOMYCIN [Concomitant]
     Active Substance: VANCOMYCIN
     Indication: Lung abscess
     Route: 065
     Dates: start: 20240606, end: 20240628
  5. SULFAMETHOXAZOLE\TRIMETHOPRIM [Concomitant]
     Active Substance: SULFAMETHOXAZOLE\TRIMETHOPRIM
     Indication: Lung abscess
     Dosage: AS TRIMETHOPRIM
     Route: 065
     Dates: start: 20240528, end: 20240621
  6. MEROPENEM [Concomitant]
     Active Substance: MEROPENEM
     Indication: Lung abscess
     Route: 065
     Dates: start: 20240616, end: 20240621
  7. NOREPINEPHRINE [Concomitant]
     Active Substance: NOREPINEPHRINE\NOREPINEPHRINE BITARTRATE
     Indication: Product used for unknown indication
     Dosage: SINCE BEFORE THE ADMINISTRATION OF FETROJA
     Route: 065
     Dates: end: 20240925
  8. FUROSEMIDE [Concomitant]
     Active Substance: FUROSEMIDE
     Indication: Product used for unknown indication
     Dosage: SINCE BEFORE THE ADMINISTRATION OF FETROJA
     Route: 065
     Dates: end: 20240627
  9. VONOPRAZAN FUMARATE [Concomitant]
     Active Substance: VONOPRAZAN FUMARATE
     Indication: Product used for unknown indication
     Dosage: SINCE BEFORE THE ADMINISTRATION OF FETROJA
     Route: 048
     Dates: end: 20240708
  10. AMBROXOL HYDROCHLORIDE [Concomitant]
     Active Substance: AMBROXOL HYDROCHLORIDE
     Indication: Product used for unknown indication
     Dosage: SINCE BEFORE THE ADMINISTRATION OF FETROJA
     Route: 048
     Dates: end: 20240706
  11. SPIRONOLACTONE [Concomitant]
     Active Substance: SPIRONOLACTONE
     Indication: Product used for unknown indication
     Dosage: SINCE BEFORE THE ADMINISTRATION OF FETROJA
     Route: 048
     Dates: end: 20240807
  12. REVATIO [Concomitant]
     Active Substance: SILDENAFIL CITRATE
     Indication: Product used for unknown indication
     Dosage: SINCE BEFORE THE ADMINISTRATION OF FETROJA
     Route: 048
     Dates: end: 20240807
  13. LEVOTHYROXINE SODIUM [Concomitant]
     Active Substance: LEVOTHYROXINE SODIUM
     Indication: Product used for unknown indication
     Dosage: SINCE BEFORE THE ADMINISTRATION OF FETROJA
     Route: 048
  14. BIOFERMIN R [ENTEROCOCCUS FAECALIS] [Concomitant]
     Indication: Product used for unknown indication
     Dosage: SINCE BEFORE THE ADMINISTRATION OF FETROJA
     Route: 048
     Dates: end: 20240807
  15. BISOPROLOL [Concomitant]
     Active Substance: BISOPROLOL
     Indication: Product used for unknown indication
     Dosage: SINCE BEFORE THE ADMINISTRATION OF FETROJA
     Route: 065

REACTIONS (1)
  - Intestinal ischaemia [Fatal]
